FAERS Safety Report 24192697 (Version 3)
Quarter: 2024Q3

REPORT INFORMATION
  Report Type: Report from Study
  Country: US (occurrence: US)
  Receive Date: 20240809
  Receipt Date: 20240924
  Transmission Date: 20241016
  Serious: Yes (Hospitalization, Other)
  Sender: UNITED THERAPEUTICS
  Company Number: US-UNITED THERAPEUTICS-UNT-2024-022083

PATIENT
  Sex: Female

DRUGS (6)
  1. TREPROSTINIL SODIUM [Suspect]
     Active Substance: TREPROSTINIL SODIUM
     Indication: Pulmonary arterial hypertension
     Dosage: 0.047 ?G/KG, CONTINUING
     Route: 041
  2. TREPROSTINIL SODIUM [Suspect]
     Active Substance: TREPROSTINIL SODIUM
     Dosage: 0.0504 ?G/KG, CONTINUING
     Route: 041
  3. TREPROSTINIL SODIUM [Suspect]
     Active Substance: TREPROSTINIL SODIUM
     Dosage: 0.0558 ?G/KG, CONTINUING
     Route: 041
  4. TREPROSTINIL SODIUM [Suspect]
     Active Substance: TREPROSTINIL SODIUM
     Dosage: UNK, CONTINUING
     Route: 041
  5. TYLENOL [Concomitant]
     Active Substance: ACETAMINOPHEN
     Indication: Headache
     Dosage: UNK
  6. IMODIUM [Concomitant]
     Active Substance: LOPERAMIDE HYDROCHLORIDE
     Indication: Diarrhoea
     Dosage: UNK

REACTIONS (11)
  - Septic shock [Unknown]
  - Supraventricular tachycardia [Not Recovered/Not Resolved]
  - Syncope [Unknown]
  - Hypotension [Unknown]
  - Accidental overdose [Recovered/Resolved]
  - Product administration interrupted [Recovered/Resolved]
  - Headache [Not Recovered/Not Resolved]
  - Diarrhoea [Not Recovered/Not Resolved]
  - Dyspnoea exertional [Not Recovered/Not Resolved]
  - Wound [Unknown]
  - Muscular weakness [Unknown]

NARRATIVE: CASE EVENT DATE: 20240101
